FAERS Safety Report 17581895 (Version 2)
Quarter: 2020Q2

REPORT INFORMATION
  Report Type: Spontaneous
  Country: US (occurrence: US)
  Receive Date: 20200325
  Receipt Date: 20200420
  Transmission Date: 20200713
  Serious: Yes (Death)
  Sender: FDA-Public Use
  Company Number: US-ASTRAZENECA-2020SE42068

PATIENT
  Age: 187 Day
  Sex: Male
  Weight: 15 kg

DRUGS (4)
  1. SYNAGIS [Suspect]
     Active Substance: PALIVIZUMAB
     Indication: DOUBLE OUTLET LEFT VENTRICLE
     Route: 030
     Dates: start: 20191112, end: 20200314
  2. SYNAGIS [Suspect]
     Active Substance: PALIVIZUMAB
     Indication: CARDIAC DISORDER
     Route: 030
     Dates: start: 20191112, end: 20200314
  3. SYNAGIS [Suspect]
     Active Substance: PALIVIZUMAB
     Indication: CARDIAC DISORDER
     Route: 030
     Dates: start: 20191118, end: 20200220
  4. SYNAGIS [Suspect]
     Active Substance: PALIVIZUMAB
     Indication: DOUBLE OUTLET LEFT VENTRICLE
     Route: 030
     Dates: start: 20191118, end: 20200220

REACTIONS (1)
  - Heart disease congenital [Fatal]

NARRATIVE: CASE EVENT DATE: 20200314
